FAERS Safety Report 21514759 (Version 4)
Quarter: 2023Q4

REPORT INFORMATION
  Report Type: Spontaneous
  Country: US (occurrence: US)
  Receive Date: 20221027
  Receipt Date: 20231109
  Transmission Date: 20240110
  Serious: Yes (Life-Threatening, Hospitalization, Other)
  Sender: FDA-Public Use
  Company Number: US-PFIZER INC-PV202200083173

PATIENT
  Age: 7 Year
  Sex: Male
  Weight: 37 kg

DRUGS (10)
  1. DIPHENHYDRAMINE HYDROCHLORIDE [Suspect]
     Active Substance: DIPHENHYDRAMINE HYDROCHLORIDE
     Indication: Dyspnoea
     Dosage: 37 MG
     Route: 042
  2. DIPHENHYDRAMINE HYDROCHLORIDE [Suspect]
     Active Substance: DIPHENHYDRAMINE HYDROCHLORIDE
     Indication: Hypersensitivity
  3. EPINEPHRINE [Suspect]
     Active Substance: EPINEPHRINE
     Indication: Dyspnoea
     Dosage: 0.3 MG
     Route: 030
  4. LORAZEPAM [Suspect]
     Active Substance: LORAZEPAM
     Indication: Generalised tonic-clonic seizure
     Dosage: 2 MG
     Route: 042
  5. LORAZEPAM [Suspect]
     Active Substance: LORAZEPAM
     Indication: Agitation
     Dosage: 6 MG
     Route: 030
  6. LEVETIRACETAM [Suspect]
     Active Substance: LEVETIRACETAM
     Indication: Generalised tonic-clonic seizure
     Dosage: 20 MG/KG
     Route: 042
  7. MIDAZOLAM [Suspect]
     Active Substance: MIDAZOLAM
     Indication: Agitation
     Dosage: 3 MG
     Route: 030
  8. MIDAZOLAM [Suspect]
     Active Substance: MIDAZOLAM
     Dosage: 1.5 MG
     Route: 030
  9. DEXAMETHASONE [Suspect]
     Active Substance: DEXAMETHASONE
     Indication: Dyspnoea
     Dosage: 12 MG
     Route: 042
  10. DOXYLAMINE [Suspect]
     Active Substance: DOXYLAMINE
     Indication: Oropharyngeal pain
     Dosage: UNK

REACTIONS (5)
  - Tachycardia [Unknown]
  - Hallucination [Unknown]
  - Agitation [Recovered/Resolved]
  - Incoherent [Unknown]
  - Delirium [Recovered/Resolved]
